FAERS Safety Report 21222932 (Version 2)
Quarter: 2022Q3

REPORT INFORMATION
  Report Type: Other
  Country: US (occurrence: US)
  Receive Date: 20220817
  Receipt Date: 20220922
  Transmission Date: 20221027
  Serious: Yes (Other)
  Sender: FDA-Public Use
  Company Number: US-DECIPHERA PHARMACEUTICALS LLC-2022US000676

PATIENT
  Sex: Female

DRUGS (1)
  1. QINLOCK [Suspect]
     Active Substance: RIPRETINIB
     Indication: Product used for unknown indication
     Dosage: 150 MILLIGRAM, QD
     Route: 048
     Dates: start: 20200731

REACTIONS (4)
  - Hepatic neoplasm [Unknown]
  - Abdominal neoplasm [Unknown]
  - Mesenteric neoplasm [Unknown]
  - Pelvic neoplasm [Unknown]

NARRATIVE: CASE EVENT DATE: 20220809
